FAERS Safety Report 19839613 (Version 1)
Quarter: 2021Q3

REPORT INFORMATION
  Report Type: Spontaneous
  Country: US (occurrence: US)
  Receive Date: 20210916
  Receipt Date: 20210916
  Transmission Date: 20211014
  Serious: No
  Sender: FDA-Public Use
  Company Number: US-BSC-202000215

PATIENT

DRUGS (1)
  1. VARITHENA [Suspect]
     Active Substance: POLIDOCANOL
     Dates: start: 202008, end: 202008

REACTIONS (2)
  - Induration [Not Recovered/Not Resolved]
  - Pain [Not Recovered/Not Resolved]
